FAERS Safety Report 8334480-6 (Version None)
Quarter: 2012Q2

REPORT INFORMATION
  Report Type: 
  Country: None (occurrence: None)
  Receive Date: 20120503
  Receipt Date: 20120419
  Transmission Date: 20120825
  Serious: No
  Sender: FDA-Public Use
  Company Number: US-ENDO PHARMACEUTICALS INC.-OPIR20120053

PATIENT
  Sex: Male

DRUGS (3)
  1. OPANA [Suspect]
     Indication: BACK INJURY
  2. OPANA [Suspect]
     Indication: INTERVERTEBRAL DISC PROTRUSION
  3. OPANA [Suspect]
     Indication: CANCER PAIN
     Route: 048
     Dates: start: 20120418

REACTIONS (2)
  - DRUG EFFECT DECREASED [None]
  - PRODUCT FORMULATION ISSUE [None]
